FAERS Safety Report 11155904 (Version 1)
Quarter: 2015Q2

REPORT INFORMATION
  Report Type: Spontaneous
  Country: US (occurrence: None)
  Receive Date: 20150529
  Receipt Date: 20150529
  Transmission Date: 20150821
  Serious: No
  Sender: FDA-Public Use
  Company Number: None

PATIENT
  Sex: Male
  Weight: 40.82 kg

DRUGS (2)
  1. OXCARBAMAZEPINE [Suspect]
     Active Substance: OXCARBAZEPINE
     Indication: AFFECTIVE DISORDER
     Route: 048
     Dates: start: 2010, end: 2012
  2. OXCARBAMAZEPINE [Suspect]
     Active Substance: OXCARBAZEPINE
     Indication: SEIZURE
     Route: 048
     Dates: start: 2010, end: 2012

REACTIONS (3)
  - Aggression [None]
  - Product substitution issue [None]
  - Seizure [None]
